FAERS Safety Report 5428640-1 (Version None)
Quarter: 2007Q3

REPORT INFORMATION
  Report Type: 
  Country: None (occurrence: None)
  Receive Date: 20070828
  Receipt Date: 20070814
  Transmission Date: 20080115
  Serious: Yes (Other)
  Sender: FDA-Public Use
  Company Number: US-SHR-US-2007-018842

PATIENT
  Age: 51 Year
  Sex: Female
  Weight: 60 kg

DRUGS (10)
  1. BETASERON [Suspect]
     Indication: SECONDARY PROGRESSIVE MULTIPLE SCLEROSIS
     Dosage: 4 MIU, EVERY 2D
     Route: 058
     Dates: start: 20070424, end: 20070520
  2. BETASERON [Suspect]
     Dosage: 6 MIU, EVERY 2D
     Route: 058
     Dates: start: 20070520
  3. BETASERON [Suspect]
     Dosage: 8 MIU, EVERY 2D
     Route: 058
  4. LYRICA [Concomitant]
     Indication: PAIN
     Dosage: 150 MG, 2X/DAY
     Route: 048
  5. CALCIUM [Concomitant]
  6. FLOMAX [Concomitant]
  7. AMITRIPTYLINE HCL [Concomitant]
  8. IMURAN [Concomitant]
     Dosage: 50 MG/D, FOR 1 WEEK
     Dates: start: 20070301
  9. IMURAN [Concomitant]
     Dosage: 50 MG, 2X/DAY
  10. SOLU-MEDROL [Concomitant]
     Route: 042
     Dates: start: 20070412, end: 20070415

REACTIONS (12)
  - ABDOMINAL DISTENSION [None]
  - CHROMATURIA [None]
  - DIZZINESS [None]
  - DRUG WITHDRAWAL SYNDROME [None]
  - HEADACHE [None]
  - INFLUENZA LIKE ILLNESS [None]
  - INJECTION SITE RASH [None]
  - MULTIPLE SCLEROSIS [None]
  - POLYURIA [None]
  - RASH MACULAR [None]
  - URINARY TRACT INFECTION [None]
  - YELLOW SKIN [None]
